FAERS Safety Report 24822642 (Version 1)
Quarter: 2025Q1

REPORT INFORMATION
  Report Type: Spontaneous
  Country: CN (occurrence: CN)
  Receive Date: 20250109
  Receipt Date: 20250109
  Transmission Date: 20250409
  Serious: Yes (Hospitalization)
  Sender: SANDOZ
  Company Number: CN-BEIGENE-BGN-2024-005924

PATIENT
  Age: 68 Year
  Sex: Male
  Weight: 53 kg

DRUGS (13)
  1. CAPECITABINE [Suspect]
     Active Substance: CAPECITABINE
     Indication: Adenocarcinoma gastric
     Dosage: 1000 MILLIGRAM/SQ. METER, BID, DAY1-15 OF 21 DAY CYCLE
     Route: 048
     Dates: start: 20240118, end: 20240418
  2. OXALIPLATIN [Suspect]
     Active Substance: OXALIPLATIN
     Indication: Adenocarcinoma gastric
     Dosage: 130 MG/M2, Q3W
     Route: 042
     Dates: start: 20240118, end: 20240418
  3. TISLELIZUMAB [Suspect]
     Active Substance: TISLELIZUMAB
     Indication: Adenocarcinoma gastric
     Dosage: 200 MILLIGRAM, Q3WK
     Route: 042
     Dates: start: 20240118, end: 20240418
  4. ZANIDATAMAB [Suspect]
     Active Substance: ZANIDATAMAB
     Indication: Adenocarcinoma gastric
     Dosage: 1800 MG, Q3W (FIRST CYCLE: 8 MG/KG, SUBSEQUENT CYCLE: 6 MG/KG)
     Route: 042
     Dates: start: 20240118, end: 20240418
  5. COMPOUND SODIUM LACTATE RINGER LACTAT [Concomitant]
     Indication: Prophylaxis against dehydration
     Dosage: 500 ML, QD
     Route: 042
     Dates: start: 20240412, end: 20240415
  6. COMPOUND SODIUM LACTATE RINGER LACTAT [Concomitant]
     Indication: Decreased appetite
  7. ESOMEPRAZOLE SODIUM [Concomitant]
     Active Substance: ESOMEPRAZOLE SODIUM
     Indication: Dyspepsia
     Dosage: 20 MILLIGRAM, QD
     Route: 042
     Dates: start: 20240412, end: 20240415
  8. ESOMEPRAZOLE SODIUM [Concomitant]
     Active Substance: ESOMEPRAZOLE SODIUM
     Indication: Prophylaxis
  9. LOPERAMIDE HYDROCHLORIDE [Concomitant]
     Active Substance: LOPERAMIDE HYDROCHLORIDE
     Indication: Adenocarcinoma gastric
     Dosage: 4 MILLIGRAM, BID
     Route: 048
     Dates: start: 20240118, end: 20240403
  10. POTASSIUM CHLORIDE [Concomitant]
     Active Substance: POTASSIUM CHLORIDE
     Indication: Decreased appetite
     Dosage: 10 MILLILITER, QD
     Route: 042
     Dates: start: 20240412, end: 20240415
  11. POTASSIUM CHLORIDE [Concomitant]
     Active Substance: POTASSIUM CHLORIDE
     Indication: Blood potassium decreased
  12. VITAMIN C [Concomitant]
     Active Substance: ASCORBIC ACID
     Indication: Decreased appetite
     Dosage: 1 GRAM, QD
     Route: 042
     Dates: start: 20240412, end: 20240415
  13. VITAMIN C [Concomitant]
     Active Substance: ASCORBIC ACID
     Indication: Vitamin supplementation

REACTIONS (1)
  - Jaundice [Not Recovered/Not Resolved]

NARRATIVE: CASE EVENT DATE: 20240418
